FAERS Safety Report 7356404-0 (Version None)
Quarter: 2011Q1

REPORT INFORMATION
  Report Type: 
  Country: None (occurrence: None)
  Receive Date: 20110316
  Receipt Date: 20110309
  Transmission Date: 20110831
  Serious: Yes (Other)
  Sender: FDA-Public Use
  Company Number: CA-ELI_LILLY_AND_COMPANY-CA201011002602

PATIENT
  Sex: Female

DRUGS (10)
  1. ASPIRIN [Concomitant]
     Dosage: 81 MG, UNK
  2. NOVO-HYDRAZIDE [Concomitant]
  3. HYDREA [Concomitant]
  4. RATIO-OMEPRAZOLE [Concomitant]
  5. CALCIUM [Concomitant]
  6. VITAMIN D [Concomitant]
  7. ALTACE [Concomitant]
  8. FORTEO [Suspect]
     Indication: OSTEOPOROSIS
     Dosage: 20 UG, DAILY (1/D)
     Route: 058
  9. FOLIC ACID [Concomitant]
  10. TYLENOL EXTRA STRENGTH [Concomitant]

REACTIONS (1)
  - FEMORAL NECK FRACTURE [None]
